FAERS Safety Report 10055921 (Version 2)
Quarter: 2014Q2

REPORT INFORMATION
  Report Type: Spontaneous
  Country: DK (occurrence: DK)
  Receive Date: 20140403
  Receipt Date: 20140403
  Transmission Date: 20141212
  Serious: Yes (Other)
  Sender: FDA-Public Use
  Company Number: DK-TEVA-472187ISR

PATIENT
  Age: 58 Year
  Sex: Male

DRUGS (2)
  1. ATORVASTATIN [Suspect]
     Dosage: 10 MG, UNK
  2. ATORVASTATIN [Suspect]
     Dosage: 20 MG, UNK

REACTIONS (2)
  - Pain in extremity [Unknown]
  - Gait disturbance [Unknown]
